FAERS Safety Report 4650398-4 (Version None)
Quarter: 2005Q2

REPORT INFORMATION
  Report Type: 
  Country: None (occurrence: None)
  Receive Date: 20050429
  Receipt Date: 20050420
  Transmission Date: 20051028
  Serious: No
  Sender: FDA-Public Use
  Company Number: 2005UW04995

PATIENT
  Age: 66 Year
  Sex: Male

DRUGS (6)
  1. ZOLADEX [Suspect]
     Indication: PROSTATE CANCER
     Dates: start: 20010718, end: 20011030
  2. TAXOL [Suspect]
     Indication: PROSTATE CANCER
     Dosage: 135 MG/M2 (TOTAL DOSE:  1100 MG)
     Dates: start: 20010718, end: 20011030
  3. ETOPOSIDE [Suspect]
     Indication: PROSTATE CANCER
     Dosage: 50 MG/M2 Q14 DAYS (TOTAL DOSE:  5600 MG)
     Dates: start: 20010718, end: 20011030
  4. ESTRAMUSTINE PHOSPHATE SODIUM [Suspect]
     Indication: PROSTATE CANCER
     Dosage: 280 MG TID Q14 DAYS (TOTAL DOSE:  47,040 MG)
     Dates: start: 20010718, end: 20011030
  5. RADIATION THERAPY [Suspect]
     Indication: PROSTATE CANCER
     Dosage: 7020 CGY FORM
     Dates: start: 20010423, end: 20010615
  6. PROCRIT [Concomitant]

REACTIONS (3)
  - ACUTE MYELOID LEUKAEMIA [None]
  - DYSPNOEA [None]
  - MYELODYSPLASTIC SYNDROME [None]
